FAERS Safety Report 12130186 (Version 1)
Quarter: 2016Q1

REPORT INFORMATION
  Report Type: Spontaneous
  Country: FR (occurrence: FR)
  Receive Date: 20160229
  Receipt Date: 20160229
  Transmission Date: 20160526
  Serious: Yes (Hospitalization)
  Sender: FDA-Public Use
  Company Number: FR-ROCHE-1717738

PATIENT
  Age: 5 Year
  Sex: Female
  Weight: 20.5 kg

DRUGS (4)
  1. NEORAL [Concomitant]
     Active Substance: CYCLOSPORINE
     Dosage: 100 MG/ML
     Route: 048
     Dates: start: 201309
  2. FORTUM [Concomitant]
     Active Substance: CEFTAZIDIME
  3. CELLCEPT [Suspect]
     Active Substance: MYCOPHENOLATE MOFETIL\MYCOPHENOLATE MOFETIL HYDROCHLORIDE
     Indication: PROPHYLAXIS AGAINST TRANSPLANT REJECTION
     Dosage: 1G/5ML
     Route: 048
     Dates: start: 201309, end: 20151124
  4. AMIKLIN [Concomitant]
     Active Substance: AMIKACIN SULFATE

REACTIONS (1)
  - Agranulocytosis [Recovered/Resolved]

NARRATIVE: CASE EVENT DATE: 20151125
